FAERS Safety Report 14980193 (Version 2)
Quarter: 2019Q2

REPORT INFORMATION
  Report Type: Spontaneous
  Country: FR (occurrence: FR)
  Receive Date: 20180606
  Receipt Date: 20190611
  Transmission Date: 20190711
  Serious: Yes (Death, Life-Threatening, Hospitalization, Other)
  Sender: FDA-Public Use
  Company Number: FR-MYLANLABS-2018M1037385

PATIENT
  Age: 46 Year
  Sex: Female

DRUGS (19)
  1. DAUNORUBICIN [Suspect]
     Active Substance: DAUNORUBICIN
     Indication: ACUTE MYELOID LEUKAEMIA
     Dosage: UNKNOWN
     Route: 065
     Dates: start: 20120330
  2. METRONIDAZOLE                      /00012504/ [Concomitant]
     Active Substance: METRONIDAZOLE HYDROCHLORIDE
     Indication: DIARRHOEA
  3. VORICONAZOLE. [Concomitant]
     Active Substance: VORICONAZOLE
     Indication: GEOTRICHUM INFECTION
     Route: 065
  4. PREDNISOLONE. [Suspect]
     Active Substance: PREDNISOLONE
     Indication: SKIN TOXICITY
     Dosage: UNKNOWN
     Route: 065
     Dates: start: 20120409, end: 20120411
  5. IDARUBICIN [Suspect]
     Active Substance: IDARUBICIN
     Indication: ACUTE MYELOID LEUKAEMIA
     Dosage: UNKNOWN
     Route: 065
     Dates: start: 20120330
  6. GENTAMICIN. [Concomitant]
     Active Substance: GENTAMICIN
     Indication: ANTIBIOTIC PROPHYLAXIS
     Dosage: UNKNOWN
     Route: 065
  7. AMPHOTERICIN B, LIPOSOME [Concomitant]
     Active Substance: AMPHOTERICIN B
     Indication: GEOTRICHUM INFECTION
     Dosage: UNK
  8. POSACONAZOLE [Concomitant]
     Active Substance: POSACONAZOLE
     Indication: ANTIFUNGAL PROPHYLAXIS
     Dosage: UNKNOWN
     Route: 065
     Dates: start: 20120407
  9. AMIKACIN. [Concomitant]
     Active Substance: AMIKACIN
     Route: 065
  10. IMIPENEM [Concomitant]
     Active Substance: IMIPENEM
     Route: 065
  11. PIPERACILLIN/TAZOBACTAM [Concomitant]
     Active Substance: PIPERACILLIN SODIUM\TAZOBACTAM SODIUM
  12. COLISTIN [Concomitant]
     Active Substance: COLISTIN
     Indication: ANTIBIOTIC PROPHYLAXIS
     Dosage: UNKNOWN
     Route: 065
  13. METRONIDAZOLE                      /00012504/ [Concomitant]
     Active Substance: METRONIDAZOLE HYDROCHLORIDE
     Indication: ABDOMINAL PAIN
  14. BELUSTINE [Suspect]
     Active Substance: LOMUSTINE
     Indication: ACUTE MYELOID LEUKAEMIA
     Dosage: UNKNOWN
     Route: 065
  15. CASPOFUNGIN [Concomitant]
     Active Substance: CASPOFUNGIN
     Indication: FEBRILE NEUTROPENIA
     Route: 065
  16. CIPROFLOXACIN. [Concomitant]
     Active Substance: CIPROFLOXACIN
     Route: 065
  17. CYTARABINE. [Suspect]
     Active Substance: CYTARABINE
     Indication: ACUTE MYELOID LEUKAEMIA
     Dosage: UNKNOWN
     Route: 065
     Dates: start: 20120330
  18. VANCOMYCIN [Concomitant]
     Active Substance: VANCOMYCIN
     Dosage: UNK
     Route: 065
  19. METRONIDAZOLE                      /00012504/ [Concomitant]
     Active Substance: METRONIDAZOLE HYDROCHLORIDE
     Indication: PYREXIA
     Route: 065

REACTIONS (13)
  - Geotrichum infection [Fatal]
  - Acute respiratory distress syndrome [Unknown]
  - Febrile neutropenia [Unknown]
  - Mitral valve incompetence [Unknown]
  - Sepsis [Fatal]
  - Skin toxicity [Unknown]
  - Haemorrhage [Fatal]
  - Colitis [Unknown]
  - Septic shock [Recovering/Resolving]
  - Ascites [Unknown]
  - Product use in unapproved indication [Unknown]
  - Tricuspid valve incompetence [Unknown]
  - Neutropenia [Recovering/Resolving]

NARRATIVE: CASE EVENT DATE: 20120330
